FAERS Safety Report 11783440 (Version 3)
Quarter: 2015Q4

REPORT INFORMATION
  Report Type: Spontaneous
  Country: US (occurrence: US)
  Receive Date: 20151127
  Receipt Date: 20151209
  Transmission Date: 20160305
  Serious: No
  Sender: FDA-Public Use
  Company Number: US-HORIZON-ACT-0199-2015

PATIENT
  Age: 10 Year
  Sex: Male

DRUGS (6)
  1. TRIMETHOPRIM. [Concomitant]
     Active Substance: TRIMETHOPRIM
  2. BACTRIM [Concomitant]
     Active Substance: SULFAMETHOXAZOLE\TRIMETHOPRIM
  3. ACTIMMUNE [Suspect]
     Active Substance: INTERFERON GAMMA-1B
     Indication: CHRONIC GRANULOMATOUS DISEASE
     Dosage: 25 ?G THREE TIMES WEEKLY
     Dates: start: 20131211
  4. MESALAMINE. [Concomitant]
     Active Substance: MESALAMINE
  5. IMMURAN [Concomitant]
  6. POSACONAZOLE [Concomitant]
     Active Substance: POSACONAZOLE

REACTIONS (4)
  - Injection site irritation [Unknown]
  - Lack of injection site rotation [Unknown]
  - Injection site bruising [Unknown]
  - Wrong technique in product usage process [Unknown]
